FAERS Safety Report 20072899 (Version 3)
Quarter: 2022Q1

REPORT INFORMATION
  Report Type: Spontaneous
  Country: ES (occurrence: ES)
  Receive Date: 20211116
  Receipt Date: 20220218
  Transmission Date: 20220424
  Serious: Yes (Disabling, Other)
  Sender: FDA-Public Use
  Company Number: ES-THERAMEX-2021000874

PATIENT
  Age: 71 Year
  Sex: Female
  Weight: 59 kg

DRUGS (9)
  1. ACETAMINOPHEN [Suspect]
     Active Substance: ACETAMINOPHEN
     Indication: Pain
     Dosage: UNK UNK, 3 TIMES A DAY(EVERY 8 HOURS, UPON FU: TAKING WHEN THERE IS PAIN)
     Route: 065
     Dates: start: 20210801
  2. FENTANYL [Suspect]
     Active Substance: FENTANYL
     Indication: Pain
     Dosage: UNK UNK, ONCE A DAY
     Route: 065
     Dates: start: 202108
  3. FENTANYL [Suspect]
     Active Substance: FENTANYL
     Dosage: UNK, 3 WEEKS, (STARTED 3-4 WEEKS AGO AND SHE CONTINUES; 1 PATCH EVERY 3 WEEKS)
     Route: 062
     Dates: start: 202108
  4. DEXKETOPROFEN TROMETAMOL [Suspect]
     Active Substance: DEXKETOPROFEN TROMETAMOL
     Indication: Pain
     Dosage: ( IF THERE^S PAIN )
     Route: 065
     Dates: start: 20210801, end: 20210804
  5. DEXKETOPROFEN TROMETAMOL [Suspect]
     Active Substance: DEXKETOPROFEN TROMETAMOL
     Dosage: UNK (STRENGTH - ASKU)
     Route: 048
     Dates: start: 20210729
  6. TERIPARATIDE [Suspect]
     Active Substance: TERIPARATIDE
     Indication: Osteoporosis
     Dosage: UNK, ONCE A DAY (1 INJ/DAY, 20 MCG/80 MC, TREATMENT CONTINUES)
     Route: 058
     Dates: start: 20210729
  7. CALCIUM CARBONATE\CHOLECALCIFEROL [Suspect]
     Active Substance: CALCIUM CARBONATE\CHOLECALCIFEROL
     Indication: Osteoporosis
     Dosage: UNK, ONCE A DAY (DAILY (1 PER DAY), YEARS, 1500 MG/400 IU)
     Route: 048
  8. LORAZEPAM [Suspect]
     Active Substance: LORAZEPAM
     Indication: Sleep disorder
     Dosage: 0.5 DOSAGE FORM, ONCE A DAY  (DAILY ? TABLET, ? OR 1 TABLET AT NIGHT, YEARS)
     Route: 048
  9. TRAMADOL HYDROCHLORIDE [Suspect]
     Active Substance: TRAMADOL HYDROCHLORIDE
     Indication: Pain
     Dosage: 150 MILLIGRAM, ONCE A DAY (1 TABLET DAILY)
     Route: 048

REACTIONS (10)
  - Gait inability [Not Recovered/Not Resolved]
  - Pain [Not Recovered/Not Resolved]
  - Fall [Unknown]
  - Spinal fracture [Unknown]
  - Arthralgia [Not Recovered/Not Resolved]
  - Back pain [Not Recovered/Not Resolved]
  - Neck pain [Not Recovered/Not Resolved]
  - Product storage error [Unknown]
  - Device use issue [Unknown]
  - Product dose omission issue [Unknown]

NARRATIVE: CASE EVENT DATE: 20210629
